FAERS Safety Report 7629156-4 (Version None)
Quarter: 2011Q3

REPORT INFORMATION
  Report Type: 
  Country: None (occurrence: None)
  Receive Date: 20110701
  Receipt Date: 20101026
  Transmission Date: 20111222
  Serious: Yes (Other)
  Sender: FDA-Public Use
  Company Number: 7024654

PATIENT
  Age: 25 Year
  Sex: Female

DRUGS (3)
  1. ALBUTEROL INHALER (SALBUTAMOL) [Concomitant]
  2. BENADRYL [Concomitant]
  3. REBIF [Suspect]
     Indication: MULTIPLE SCLEROSIS
     Dosage: 22 MCG, 3 IN 1 WK, SUBCUTANEOUS
     Route: 058
     Dates: start: 20100827, end: 20100101

REACTIONS (1)
  - HYPERSENSITIVITY [None]
